FAERS Safety Report 8438740-X (Version None)
Quarter: 2012Q2

REPORT INFORMATION
  Report Type: 
  Country: None (occurrence: None)
  Receive Date: 20120611
  Receipt Date: 20120611
  Transmission Date: 20120825
  Serious: No
  Sender: FDA-Public Use
  Company Number: None

PATIENT
  Age: 61 Year
  Sex: Female
  Weight: 46.7205 kg

DRUGS (5)
  1. LANSOPRAZOLE [Suspect]
     Indication: GASTROOESOPHAGEAL REFLUX DISEASE
     Dosage: 30 MG 2 DAILY
     Dates: start: 20100101
  2. LANSOPRAZOLE [Suspect]
     Indication: GASTROOESOPHAGEAL REFLUX DISEASE
     Dosage: 30 MG 2 DAILY
     Dates: start: 20110101
  3. LANSOPRAZOLE [Suspect]
     Dosage: 30 MG 2 DAILY
     Dates: start: 20120601
  4. LANSOPRAZOLE [Suspect]
     Dosage: 30 MG 2 DAILY
     Dates: start: 20120201
  5. PREVACID [Concomitant]

REACTIONS (17)
  - NAUSEA [None]
  - VOMITING [None]
  - RASH [None]
  - DIZZINESS [None]
  - ABDOMINAL PAIN UPPER [None]
  - HEADACHE [None]
  - TREATMENT FAILURE [None]
  - ERUCTATION [None]
  - PARAESTHESIA [None]
  - DYSPNOEA [None]
  - SWELLING FACE [None]
  - PHARYNGEAL OEDEMA [None]
  - DYSPEPSIA [None]
  - CHEST PAIN [None]
  - PAIN IN JAW [None]
  - SWOLLEN TONGUE [None]
  - DIARRHOEA [None]
